FAERS Safety Report 7417139-9 (Version None)
Quarter: 2011Q2

REPORT INFORMATION
  Report Type: 
  Country: None (occurrence: None)
  Receive Date: 20110415
  Receipt Date: 20110408
  Transmission Date: 20111010
  Serious: Yes (Death, Life-Threatening, Hospitalization, Disabling, Other)
  Sender: FDA-Public Use
  Company Number: NL-SANOFI-AVENTIS-2011SA022146

PATIENT
  Sex: Male

DRUGS (13)
  1. BIVALIRUDIN [Suspect]
     Dosage: BOLUS
     Route: 051
     Dates: start: 20110130, end: 20110131
  2. PLAVIX [Suspect]
     Indication: ACUTE CORONARY SYNDROME
     Dates: start: 20110130, end: 20110130
  3. PLAVIX [Suspect]
     Route: 048
     Dates: start: 20110131, end: 20110318
  4. METOPROLOL TARTRATE [Concomitant]
  5. DIPYRIDAMOLE [Suspect]
     Indication: CEREBROVASCULAR ACCIDENT
     Route: 048
  6. PRAVASTATIN [Concomitant]
  7. ALBUTEROL SULFATE AUTOHALER [Concomitant]
  8. ASPIRIN [Suspect]
     Dosage: MAINTENENCE DOSE {=100MG
     Route: 048
     Dates: start: 20110131, end: 20110318
  9. ASPIRIN [Suspect]
     Dosage: MAINTENENCE DOSE {=100MG
     Dates: start: 20110130, end: 20110130
  10. ASPIRIN [Suspect]
     Indication: ACUTE CORONARY SYNDROME
     Dosage: INITIAL DOSE }162MG
     Dates: start: 20110130, end: 20110130
  11. BIVALIRUDIN [Suspect]
     Indication: PERCUTANEOUS CORONARY INTERVENTION
     Dosage: BOLUS
     Route: 051
     Dates: start: 20110130, end: 20110130
  12. BIVALIRUDIN [Suspect]
     Dosage: BOLUS
     Route: 051
     Dates: start: 20110130, end: 20110130
  13. FLUTICASONE/SALMETEROL [Concomitant]

REACTIONS (12)
  - AORTIC ANEURYSM RUPTURE [None]
  - MULTI-ORGAN FAILURE [None]
  - PROCEDURAL COMPLICATION [None]
  - BLOOD CREATININE INCREASED [None]
  - CYSTITIS [None]
  - CRITICAL ILLNESS POLYNEUROPATHY [None]
  - INTESTINAL ISCHAEMIA [None]
  - PNEUMONIA [None]
  - OVERDOSE [None]
  - HAEMODYNAMIC INSTABILITY [None]
  - PERITONEAL HAEMORRHAGE [None]
  - HAEMOGLOBIN DECREASED [None]
